FAERS Safety Report 6538320-7 (Version None)
Quarter: 2010Q1

REPORT INFORMATION
  Report Type: 
  Country: None (occurrence: None)
  Receive Date: 20100112
  Receipt Date: 20100112
  Transmission Date: 20100710
  Serious: No
  Sender: FDA-Public Use
  Company Number: None

PATIENT
  Age: 67 Year
  Sex: Female
  Weight: 71.6683 kg

DRUGS (1)
  1. ZICAM UNKNOWN [Suspect]
     Indication: NASOPHARYNGITIS
     Dosage: SMALL DAB IN EACH ONCE A DAY NASAL
     Route: 045
     Dates: start: 20070308, end: 20071201

REACTIONS (2)
  - ANOSMIA [None]
  - HYPOSMIA [None]
